FAERS Safety Report 17038729 (Version 1)
Quarter: 2019Q4

REPORT INFORMATION
  Report Type: Report from Study
  Country: MX (occurrence: MX)
  Receive Date: 20191115
  Receipt Date: 20191115
  Transmission Date: 20200122
  Serious: Yes (Hospitalization)
  Sender: FDA-Public Use
  Company Number: NVSC2019MX036521

PATIENT
  Sex: Male
  Weight: 65 kg

DRUGS (1)
  1. EXFORGE HCT [Suspect]
     Active Substance: AMLODIPINE BESYLATE\HYDROCHLOROTHIAZIDE\VALSARTAN
     Indication: BLOOD PRESSURE ABNORMAL
     Dosage: 1 DF (10 MG), QD
     Route: 048
     Dates: start: 20190927

REACTIONS (2)
  - Blood pressure abnormal [Unknown]
  - Cerebrovascular accident [Unknown]
